FAERS Safety Report 13066677 (Version 1)
Quarter: 2016Q4

REPORT INFORMATION
  Report Type: Spontaneous
  Country: CL (occurrence: CL)
  Receive Date: 20161227
  Receipt Date: 20161227
  Transmission Date: 20170207
  Serious: Yes (Other)
  Sender: FDA-Public Use
  Company Number: CL-JNJFOC-20161221544

PATIENT

DRUGS (1)
  1. TRAMADOL HYDROCHLORIDE. [Suspect]
     Active Substance: TRAMADOL HYDROCHLORIDE
     Indication: PRODUCT USED FOR UNKNOWN INDICATION
     Route: 065

REACTIONS (14)
  - Bradycardia [Unknown]
  - Hypotension [Unknown]
  - Respiratory symptom [Unknown]
  - Medication error [Unknown]
  - Anaphylactic reaction [Unknown]
  - Cyanosis [Unknown]
  - Multiple organ dysfunction syndrome [Unknown]
  - Neurological symptom [Unknown]
  - Seizure [Unknown]
  - Oxygen saturation decreased [Unknown]
  - Coma [Unknown]
  - Gastrointestinal disorder [Unknown]
  - Respiratory depression [Unknown]
  - Accidental exposure to product [Unknown]
